FAERS Safety Report 9382848 (Version 1)
Quarter: 2013Q3

REPORT INFORMATION
  Report Type: Spontaneous
  Country: US (occurrence: US)
  Receive Date: 20130703
  Receipt Date: 20130703
  Transmission Date: 20140515
  Serious: Yes (Death)
  Sender: FDA-Public Use
  Company Number: US-TEVA-415992USA

PATIENT
  Age: 66 Year
  Sex: Female
  Weight: 79 kg

DRUGS (17)
  1. FENTORA [Suspect]
     Indication: SQUAMOUS CELL CARCINOMA
     Dates: start: 20130320
  2. COUMADIN [Concomitant]
     Indication: ANTICOAGULANT THERAPY
  3. ULTRAM [Concomitant]
  4. TESSALON PEARLS [Concomitant]
  5. CARBITAXEL [Concomitant]
     Indication: CHEMOTHERAPY
  6. PAXITAXEL [Concomitant]
     Indication: CHEMOTHERAPY
  7. FENTANYL PATCH [Concomitant]
     Indication: PAIN
  8. DECADRON [Concomitant]
  9. ZOFRAN [Concomitant]
  10. POTASSIUM [Concomitant]
  11. LASIX [Concomitant]
  12. CLONIDINE [Concomitant]
  13. ZOCOR [Concomitant]
  14. ADVAIR [Concomitant]
  15. PREMARIN [Concomitant]
  16. PROTONIX [Concomitant]
  17. VENTOLIN [Concomitant]

REACTIONS (2)
  - Death [Fatal]
  - Confusional state [Unknown]
